FAERS Safety Report 5822692-2 (Version None)
Quarter: 2008Q3

REPORT INFORMATION
  Report Type: 
  Country: None (occurrence: None)
  Receive Date: 20080725
  Receipt Date: 20080723
  Transmission Date: 20090109
  Serious: Yes (Hospitalization)
  Sender: FDA-Public Use
  Company Number: US-BRISTOL-MYERS SQUIBB COMPANY-14034300

PATIENT
  Age: 47 Year
  Sex: Male
  Weight: 68 kg

DRUGS (12)
  1. REYATAZ [Suspect]
     Indication: HIV INFECTION
     Dosage: 200 MG BID FROM 2004 TO 2007.
     Dates: start: 20080702
  2. EPIVIR [Concomitant]
  3. VIREAD [Concomitant]
  4. RITONAVIR [Concomitant]
  5. BACLOFEN [Concomitant]
  6. KEPPRA [Concomitant]
  7. TEGRETOL [Concomitant]
  8. TOPAMAX [Concomitant]
  9. ENALAPRIL MALEATE [Concomitant]
  10. DIOVAN [Concomitant]
  11. DAPSONE [Concomitant]
  12. NEURONTIN [Concomitant]

REACTIONS (9)
  - CEREBROVASCULAR ACCIDENT [None]
  - DIZZINESS [None]
  - DYSTONIA [None]
  - FATIGUE [None]
  - HEADACHE [None]
  - LIPOATROPHY [None]
  - MUSCLE SPASMS [None]
  - NAUSEA [None]
  - NEUROPATHY PERIPHERAL [None]
